FAERS Safety Report 14639701 (Version 1)
Quarter: 2018Q1

REPORT INFORMATION
  Report Type: Spontaneous
  Country: PT (occurrence: PT)
  Receive Date: 20180315
  Receipt Date: 20180315
  Transmission Date: 20180509
  Serious: Yes (Other)
  Sender: FDA-Public Use
  Company Number: PT-ROCHE-2084454

PATIENT
  Sex: Female

DRUGS (11)
  1. PERJETA [Suspect]
     Active Substance: PERTUZUMAB
     Indication: BREAST CANCER
     Route: 042
     Dates: start: 20170322
  2. DOXORUBICIN [Suspect]
     Active Substance: DOXORUBICIN
     Indication: BREAST CANCER
     Dosage: LAST DOSE OF DOXORUBICIN ADMINISTERED ON : 24/FEB/2017
     Route: 065
     Dates: start: 20161223
  3. DOCETAXEL. [Suspect]
     Active Substance: DOCETAXEL
     Route: 065
     Dates: start: 20170412
  4. ARTHROTEC [Concomitant]
     Active Substance: DICLOFENAC SODIUM\MISOPROSTOL
     Route: 065
  5. PERJETA [Suspect]
     Active Substance: PERTUZUMAB
     Dosage: LAST DOSE OF PERTUZUMAB ADMINISTERED ON: 24/MAY/2017
     Route: 042
     Dates: start: 20170412
  6. CYCLOPHOSPHAMIDE. [Suspect]
     Active Substance: CYCLOPHOSPHAMIDE
     Indication: BREAST CANCER
     Dosage: LAST DOSE OF CYCLOPHOSPHAMIDE ADMINISTERED ON : 24/FEB/2017
     Route: 065
     Dates: start: 20161223
  7. DOCETAXEL. [Suspect]
     Active Substance: DOCETAXEL
     Indication: BREAST CANCER
     Dosage: LAST DOSE OF DOCETAXEL ADMINISTERED ON: 24/MAY/2017
     Route: 065
     Dates: start: 20170322, end: 20170322
  8. GLUCOMED [Concomitant]
     Route: 065
  9. TRASTUZUMAB. [Suspect]
     Active Substance: TRASTUZUMAB
     Indication: BREAST CANCER
     Route: 042
     Dates: start: 20170322, end: 20170322
  10. TRASTUZUMAB. [Suspect]
     Active Substance: TRASTUZUMAB
     Dosage: LAST DOSE OF TRASTUZUMAB ADMINISTERED ON : 24/MAY/2017
     Route: 042
     Dates: start: 20170412
  11. VALDISPERT [Concomitant]
     Active Substance: HERBALS
     Dosage: 1 TABLET/DAY
     Route: 065

REACTIONS (10)
  - Post procedural haemorrhage [Unknown]
  - Fatigue [Unknown]
  - Lacrimation increased [Unknown]
  - Erythema [Unknown]
  - Anaemia [Unknown]
  - Palmar-plantar erythrodysaesthesia syndrome [Unknown]
  - Alopecia [Unknown]
  - Nausea [Unknown]
  - Decreased appetite [Unknown]
  - Mucosal inflammation [Unknown]

NARRATIVE: CASE EVENT DATE: 20170720
